FAERS Safety Report 6425039-6 (Version None)
Quarter: 2009Q4

REPORT INFORMATION
  Report Type: 
  Country: None (occurrence: None)
  Receive Date: 20091030
  Receipt Date: 20091030
  Transmission Date: 20100525
  Serious: No
  Sender: FDA-Public Use
  Company Number: None

PATIENT
  Sex: Male
  Weight: 11.51 kg

DRUGS (1)
  1. TAMIFLU [Suspect]
     Indication: INFLUENZA LIKE ILLNESS
     Dosage: 30 MG BID ORAL
     Route: 048
     Dates: start: 20091021, end: 20091025

REACTIONS (2)
  - ERYTHEMA MULTIFORME [None]
  - HYPERSENSITIVITY [None]
